FAERS Safety Report 5338945-0 (Version None)
Quarter: 2007Q2

REPORT INFORMATION
  Report Type: 
  Country: None (occurrence: None)
  Receive Date: 20070404
  Receipt Date: 20070112
  Transmission Date: 20071010
  Serious: Yes (Other)
  Sender: FDA-Public Use
  Company Number: HQWYE474115JAN07

PATIENT
  Age: 53 Year
  Sex: Male
  Weight: 83.99 kg

DRUGS (5)
  1. ALAVERT [Suspect]
     Indication: LACRIMATION INCREASED
     Dosage: 1 TABLET 2X PER 1 DAY, ORAL
     Route: 048
     Dates: start: 20061201, end: 20070101
  2. ALAVERT [Suspect]
     Indication: RHINORRHOEA
     Dosage: 1 TABLET 2X PER 1 DAY, ORAL
     Route: 048
     Dates: start: 20061201, end: 20070101
  3. ALAVERT [Suspect]
     Indication: SNEEZING
     Dosage: 1 TABLET 2X PER 1 DAY, ORAL
     Route: 048
     Dates: start: 20061201, end: 20070101
  4. ALAVERT [Suspect]
     Indication: THROAT IRRITATION
     Dosage: 1 TABLET 2X PER 1 DAY, ORAL
     Route: 048
     Dates: start: 20061201, end: 20070101
  5. WELLBUTRIN XL [Concomitant]

REACTIONS (1)
  - DRUG EFFECT DECREASED [None]
